FAERS Safety Report 14220463 (Version 3)
Quarter: 2018Q1

REPORT INFORMATION
  Report Type: Spontaneous
  Country: US (occurrence: US)
  Receive Date: 20171123
  Receipt Date: 20180214
  Transmission Date: 20180508
  Serious: No
  Sender: FDA-Public Use
  Company Number: US-JNJFOC-20171101434

PATIENT
  Sex: Male

DRUGS (1)
  1. RISPERDAL [Suspect]
     Active Substance: RISPERIDONE
     Indication: MENTAL DISORDER
     Dosage: TOTAL DOSE- 15 MG
     Route: 048
     Dates: start: 1999, end: 2005

REACTIONS (1)
  - Gynaecomastia [Not Recovered/Not Resolved]
